FAERS Safety Report 11746999 (Version 1)
Quarter: 2015Q4

REPORT INFORMATION
  Report Type: Spontaneous
  Country: CH (occurrence: CH)
  Receive Date: 20151117
  Receipt Date: 20151117
  Transmission Date: 20160304
  Serious: Yes (Hospitalization, Other)
  Sender: FDA-Public Use
  Company Number: CH-PFIZER INC-2015385664

PATIENT
  Age: 85 Year
  Sex: Female

DRUGS (22)
  1. LYRICA [Suspect]
     Active Substance: PREGABALIN
     Indication: NEURALGIA
     Route: 048
     Dates: start: 20150811
  2. BELOC /00030002/ [Concomitant]
     Route: 048
  3. CALCIMAGON D3 [Concomitant]
     Active Substance: CALCIUM\CHOLECALCIFEROL
     Route: 048
  4. SIMVASTATIN. [Concomitant]
     Active Substance: SIMVASTATIN
     Route: 048
     Dates: end: 20150929
  5. AUGMENTIN [Suspect]
     Active Substance: AMOXICILLIN\CLAVULANATE POTASSIUM
     Indication: URINARY TRACT INFECTION
     Dosage: 1.2 G, /12 HOURS
     Dates: start: 20150826, end: 20150826
  6. DAFALGAN [Concomitant]
     Active Substance: ACETAMINOPHEN
     Dates: start: 20150823, end: 20150827
  7. PROGRAF [Concomitant]
     Active Substance: TACROLIMUS\TACROLIMUS ANHYDROUS
     Route: 048
  8. PIPERACILIN/TAZOBACTAM [Concomitant]
     Active Substance: PIPERACILLIN SODIUM\TAZOBACTAM SODIUM
     Route: 041
     Dates: start: 20150827, end: 20150902
  9. TEMESTA /00273201/ [Concomitant]
     Active Substance: LORAZEPAM
     Route: 048
  10. DUSPATALIN /00139402/ [Concomitant]
     Active Substance: MEBEVERINE HYDROCHLORIDE
  11. AMOXICILLIN. [Suspect]
     Active Substance: AMOXICILLIN
     Indication: CHOLANGIOLITIS
     Route: 048
     Dates: start: 20150923, end: 20151009
  12. AMOXICILLIN. [Suspect]
     Active Substance: AMOXICILLIN
     Indication: CHOLANGITIS
  13. LANTUS [Concomitant]
     Active Substance: INSULIN GLARGINE
     Route: 058
  14. ASPIRIN CARDIO [Concomitant]
     Active Substance: ASPIRIN
     Route: 048
  15. CALCIPARINE [Concomitant]
     Active Substance: HEPARIN CALCIUM
     Route: 058
  16. NEXIUM [Concomitant]
     Active Substance: ESOMEPRAZOLE MAGNESIUM
     Route: 048
     Dates: end: 20150923
  17. CIPROFLOXACIN HCL [Suspect]
     Active Substance: CIPROFLOXACIN HYDROCHLORIDE
     Route: 048
     Dates: start: 20150923, end: 20151009
  18. AUGMENTIN [Suspect]
     Active Substance: AMOXICILLIN\CLAVULANATE POTASSIUM
     Indication: URINARY TRACT INFECTION
     Dosage: 1.2G /8 HOURS
     Route: 041
     Dates: start: 20150825, end: 20150825
  19. EZETROL [Concomitant]
     Active Substance: EZETIMIBE
     Route: 048
  20. ZANIDIP [Concomitant]
     Active Substance: LERCANIDIPINE HYDROCHLORIDE
     Route: 048
  21. NITRODERM [Concomitant]
     Active Substance: NITROGLYCERIN
     Route: 062
  22. PREDNISON [Concomitant]
     Active Substance: PREDNISONE
     Route: 048

REACTIONS (1)
  - Cholestasis [Recovering/Resolving]

NARRATIVE: CASE EVENT DATE: 20150830
